FAERS Safety Report 9193898 (Version 1)
Quarter: 2013Q1

REPORT INFORMATION
  Report Type: Spontaneous
  Country: GB (occurrence: GB)
  Receive Date: 20130327
  Receipt Date: 20130327
  Transmission Date: 20140127
  Serious: Yes (Hospitalization)
  Sender: FDA-Public Use
  Company Number: GB-TEVA-393894ISR

PATIENT
  Age: 68 Year
  Sex: Male

DRUGS (11)
  1. LANSOPRAZOLE [Suspect]
     Indication: GASTROOESOPHAGEAL REFLUX DISEASE
     Route: 048
     Dates: end: 20130308
  2. AMLODIPINE [Concomitant]
  3. TRAMADOL [Concomitant]
  4. COLECALCIFEROL [Concomitant]
  5. NOVORAPID [Concomitant]
  6. LEVEMIR [Concomitant]
  7. ANTOX [Concomitant]
  8. PROPRANOLOL [Concomitant]
  9. SIMVASTATIN [Concomitant]
  10. CREON [Concomitant]
  11. METOCLOPRAMIDE [Concomitant]

REACTIONS (1)
  - Hyponatraemia [Not Recovered/Not Resolved]
